FAERS Safety Report 24060212 (Version 2)
Quarter: 2024Q3

REPORT INFORMATION
  Report Type: Spontaneous
  Country: JP (occurrence: JP)
  Receive Date: 20240708
  Receipt Date: 20240714
  Transmission Date: 20241017
  Serious: Yes (Death)
  Sender: EISAI
  Company Number: JP-Eisai-202404288_LEN_P_1

PATIENT
  Age: 58 Year
  Sex: Male

DRUGS (1)
  1. LENVIMA [Suspect]
     Active Substance: LENVATINIB
     Indication: Anaplastic thyroid cancer
     Dosage: DOSE AND FREQUENCY UNKNOWN
     Route: 048

REACTIONS (1)
  - Pneumonia staphylococcal [Fatal]
